FAERS Safety Report 5199660-X (Version None)
Quarter: 2007Q1

REPORT INFORMATION
  Report Type: 
  Country: None (occurrence: None)
  Receive Date: 20070103
  Receipt Date: 20070103
  Transmission Date: 20070707
  Serious: Yes (Death)
  Sender: FDA-Public Use
  Company Number: None

PATIENT
  Age: 77 Year
  Sex: Male

DRUGS (1)
  1. LOVENOX [Suspect]
     Dosage: 100MG  BID  SQ
     Route: 058
     Dates: start: 20060626, end: 20060629

REACTIONS (5)
  - ASTHENIA [None]
  - HAEMORRHAGE [None]
  - MULTI-ORGAN FAILURE [None]
  - POST PROCEDURAL COMPLICATION [None]
  - RETROPERITONEAL HAEMATOMA [None]
